FAERS Safety Report 4379252-2 (Version None)
Quarter: 2004Q2

REPORT INFORMATION
  Report Type: 
  Country: None (occurrence: None)
  Receive Date: 20040610
  Receipt Date: 20040601
  Transmission Date: 20050107
  Serious: Yes (Other)
  Sender: FDA-Public Use
  Company Number: 04-000347

PATIENT
  Age: 60 Year
  Sex: Female

DRUGS (1)
  1. FEMRING (ESTRADIOL ACETATE) VAGINAL RING [Suspect]
     Indication: VULVOVAGINAL DRYNESS
     Dosage: QD, VAGINAL
     Route: 067

REACTIONS (5)
  - BACK PAIN [None]
  - BLADDER PROLAPSE [None]
  - MEDICAL DEVICE COMPLICATION [None]
  - PAIN IN EXTREMITY [None]
  - UTERINE PROLAPSE [None]
